FAERS Safety Report 14717848 (Version 2)
Quarter: 2018Q2

REPORT INFORMATION
  Report Type: Report from Study
  Country: US (occurrence: US)
  Receive Date: 20180404
  Receipt Date: 20180615
  Transmission Date: 20180711
  Serious: Yes (Hospitalization)
  Sender: FDA-Public Use
  Company Number: US-SA-2018SA032827

PATIENT
  Age: 54 Year
  Sex: Male

DRUGS (2)
  1. DUPILUMAB [Suspect]
     Active Substance: DUPILUMAB
     Indication: ECZEMA
     Dosage: 300 MG,QOW
     Route: 058
     Dates: start: 2018
  2. DUPILUMAB [Suspect]
     Active Substance: DUPILUMAB
     Indication: DERMATITIS ATOPIC
     Dosage: 600 MG,1X
     Route: 058
     Dates: start: 20180122, end: 20180122

REACTIONS (10)
  - Condition aggravated [Recovered/Resolved]
  - Back disorder [Recovered/Resolved]
  - Drug dose omission [Unknown]
  - Malaise [Unknown]
  - Headache [Unknown]
  - Rhinorrhoea [Unknown]
  - Abdominal pain upper [Recovered/Resolved]
  - Rhinorrhoea [Unknown]
  - Gastrointestinal disorder [Unknown]
  - Abdominal distension [Recovered/Resolved]

NARRATIVE: CASE EVENT DATE: 2018
